FAERS Safety Report 12443133 (Version 1)
Quarter: 2016Q2

REPORT INFORMATION
  Report Type: Spontaneous
  Country: US (occurrence: None)
  Receive Date: 20160606
  Receipt Date: 20160606
  Transmission Date: 20160815
  Serious: No
  Sender: FDA-Public Use
  Company Number: None

PATIENT
  Sex: Female

DRUGS (2)
  1. NOVOLIN [Suspect]
     Active Substance: INSULIN HUMAN
     Dosage: 35 UNITS TWICE A DAY
  2. GLIPIZIDE. [Suspect]
     Active Substance: GLIPIZIDE

REACTIONS (1)
  - Blood glucose decreased [None]
